FAERS Safety Report 6636936-0 (Version None)
Quarter: 2010Q1

REPORT INFORMATION
  Report Type: 
  Country: None (occurrence: None)
  Receive Date: 20100316
  Receipt Date: 20100302
  Transmission Date: 20100710
  Serious: Yes (Hospitalization)
  Sender: FDA-Public Use
  Company Number: US-ELI_LILLY_AND_COMPANY-US201003001709

PATIENT
  Sex: Female

DRUGS (4)
  1. FORTEO [Suspect]
     Indication: OSTEOPOROSIS
     Dosage: 20 UG, DAILY (1/D)
     Dates: start: 20080101
  2. CALCIUM [Concomitant]
  3. PREDNISONE [Concomitant]
  4. HYDROCODONE [Concomitant]

REACTIONS (2)
  - INCREASED BRONCHIAL SECRETION [None]
  - STRESS FRACTURE [None]
